FAERS Safety Report 5894432-2 (Version None)
Quarter: 2008Q3

REPORT INFORMATION
  Report Type: 
  Country: None (occurrence: None)
  Receive Date: 20080923
  Receipt Date: 20080923
  Transmission Date: 20090109
  Serious: Yes (Other)
  Sender: FDA-Public Use
  Company Number: None

PATIENT
  Age: 51 Year
  Sex: Male
  Weight: 104.7809 kg

DRUGS (1)
  1. CYMBALTA [Suspect]
     Indication: AFFECTIVE DISORDER
     Dosage: 30 MG BID PO
     Route: 048
     Dates: start: 20080620, end: 20080626

REACTIONS (4)
  - AMMONIA INCREASED [None]
  - ATAXIA [None]
  - CONFUSIONAL STATE [None]
  - DYSARTHRIA [None]
